FAERS Safety Report 9482627 (Version 1)
Quarter: 2013Q3

REPORT INFORMATION
  Report Type: Spontaneous
  Country: FR (occurrence: FR)
  Receive Date: 20130828
  Receipt Date: 20130828
  Transmission Date: 20140515
  Serious: Yes (Other)
  Sender: FDA-Public Use
  Company Number: FR-AMGEN-FRASP2013059779

PATIENT
  Age: 31 Year
  Sex: Female
  Weight: 56 kg

DRUGS (3)
  1. ENBREL [Suspect]
     Indication: RHEUMATOID ARTHRITIS
     Dosage: UNK
     Route: 065
     Dates: end: 20130417
  2. ENBREL [Suspect]
     Dosage: INCREASED TO 50 MG, WEEKLY
     Route: 065
     Dates: start: 20130418
  3. CORTANCYL [Suspect]
     Indication: RHEUMATOID ARTHRITIS
     Dosage: 5 MG, 1X/DAY
     Route: 065

REACTIONS (3)
  - Rheumatoid arthritis [Unknown]
  - Asthenia [Unknown]
  - Nausea [Unknown]
